FAERS Safety Report 15676691 (Version 1)
Quarter: 2018Q4

REPORT INFORMATION
  Report Type: Spontaneous
  Country: US (occurrence: US)
  Receive Date: 20181130
  Receipt Date: 20181130
  Transmission Date: 20190205
  Serious: No
  Sender: FDA-Public Use
  Company Number: US-SA-2018SA328839

PATIENT
  Age: 75 Year
  Sex: Female

DRUGS (1)
  1. PRALUENT [Suspect]
     Active Substance: ALIROCUMAB
     Indication: HYPERTENSION
     Dosage: 75 MG, QOW
     Route: 058
     Dates: start: 20180406

REACTIONS (2)
  - Laryngitis [Recovering/Resolving]
  - Oropharyngeal pain [Unknown]
